FAERS Safety Report 21272681 (Version 1)
Quarter: 2022Q3

REPORT INFORMATION
  Report Type: Spontaneous
  Country: ES (occurrence: None)
  Receive Date: 20220830
  Receipt Date: 20220830
  Transmission Date: 20221026
  Serious: Yes (Hospitalization)
  Sender: FDA-Public Use
  Company Number: 2022A295273

PATIENT
  Age: 67 Year
  Sex: Female

DRUGS (1)
  1. EVUSHELD [Suspect]
     Active Substance: CILGAVIMAB\TIXAGEVIMAB
     Indication: COVID-19 treatment
     Dosage: 150 MG +150 MG1.0DF ONCE/SINGLE ADMINISTRATION
     Route: 030
     Dates: start: 20220707, end: 20220707

REACTIONS (1)
  - Meningitis aseptic [Recovered/Resolved]

NARRATIVE: CASE EVENT DATE: 20220713
